FAERS Safety Report 23017495 (Version 1)
Quarter: 2023Q4

REPORT INFORMATION
  Report Type: Spontaneous
  Country: PT (occurrence: PT)
  Receive Date: 20231003
  Receipt Date: 20231003
  Transmission Date: 20240110
  Serious: Yes (Other)
  Sender: FDA-Public Use
  Company Number: PT-CELLTRION HEALTHCARE HUNGARY KFT-2023PT018404

PATIENT
  Age: 32 Year
  Sex: Female

DRUGS (7)
  1. REMICADE [Suspect]
     Active Substance: INFLIXIMAB
     Indication: Crohn^s disease
     Dosage: UNK
     Route: 042
     Dates: start: 20230317, end: 20230317
  2. REMICADE [Suspect]
     Active Substance: INFLIXIMAB
     Indication: Crohn^s disease
     Dosage: 300 MILLIGRAM, EVERY TOTAL
     Route: 042
     Dates: start: 20230626, end: 20230626
  3. REMICADE [Suspect]
     Active Substance: INFLIXIMAB
     Dosage: UNK
     Route: 042
     Dates: start: 202009, end: 202209
  4. REMICADE [Suspect]
     Active Substance: INFLIXIMAB
     Dosage: UNK
     Route: 042
     Dates: start: 20230414, end: 20230414
  5. REMICADE [Suspect]
     Active Substance: INFLIXIMAB
     Dosage: UNK
     Route: 042
     Dates: start: 202209, end: 20230127
  6. REMICADE [Suspect]
     Active Substance: INFLIXIMAB
     Dosage: 120 MG, EVERY 15 DAYS
     Route: 042
     Dates: start: 20230714
  7. AZATHIOPRINE [Suspect]
     Active Substance: AZATHIOPRINE
     Indication: Product used for unknown indication
     Dosage: 50 MILLIGRAM / VOLUNTARY DISCONTINUATION OF THERAPY
     Route: 065
     Dates: start: 202009

REACTIONS (7)
  - Local reaction [Recovered/Resolved]
  - Crohn^s disease [Recovered/Resolved]
  - Injection site erythema [Recovered/Resolved]
  - Administration site pruritus [Recovered/Resolved]
  - Drug specific antibody absent [Unknown]
  - Intentional product use issue [Unknown]
  - Drug level below therapeutic [Unknown]

NARRATIVE: CASE EVENT DATE: 20230127
